FAERS Safety Report 5830813-0 (Version None)
Quarter: 2008Q3

REPORT INFORMATION
  Report Type: 
  Country: None (occurrence: None)
  Receive Date: 20080801
  Receipt Date: 20071207
  Transmission Date: 20090109
  Serious: No
  Sender: FDA-Public Use
  Company Number: US-BRISTOL-MYERS SQUIBB COMPANY-14008387

PATIENT
  Age: 83 Year
  Sex: Female
  Weight: 63 kg

DRUGS (5)
  1. COUMADIN [Suspect]
     Dosage: DOSE CHANGE FROM 6DAYS-2.5MG; 7TH DAY-5MG TO 5 DAYS; 2DAYS-5MG.
  2. VERAPAMIL HCL [Concomitant]
  3. DIGOXIN [Concomitant]
  4. LASIX [Concomitant]
  5. MICRO-K [Concomitant]

REACTIONS (1)
  - INTERNATIONAL NORMALISED RATIO FLUCTUATION [None]
